FAERS Safety Report 7287740-4 (Version None)
Quarter: 2011Q1

REPORT INFORMATION
  Report Type: 
  Country: None (occurrence: None)
  Receive Date: 20110211
  Receipt Date: 20110202
  Transmission Date: 20110831
  Serious: Yes (Death, Other)
  Sender: FDA-Public Use
  Company Number: JP-MILLENNIUM PHARMACEUTICALS, INC.-2007-02557

PATIENT

DRUGS (13)
  1. DECADRON [Suspect]
     Dosage: 10.00 MG, UNK
     Route: 042
     Dates: start: 20070420, end: 20070424
  2. AMLODIPINE [Concomitant]
     Dosage: 5.00 MG, UNK
     Route: 048
     Dates: start: 20070322, end: 20070412
  3. BAKTAR [Concomitant]
     Indication: PROPHYLAXIS
     Dosage: 1.00 DF, UNK
     Route: 048
     Dates: start: 20070322, end: 20070412
  4. VELCADE [Suspect]
     Indication: MULTIPLE MYELOMA
     Dosage: 1.80 MG, UNK
     Route: 042
     Dates: start: 20070323, end: 20070420
  5. LASIX [Concomitant]
     Dosage: 20.00 MG, UNK
     Route: 042
     Dates: start: 20070323, end: 20070329
  6. ZYLORIC [Concomitant]
     Dosage: 300.00 MG, UNK
     Route: 048
     Dates: start: 20070322, end: 20070406
  7. DECADRON [Suspect]
     Indication: MULTIPLE MYELOMA
     Dosage: 20.00 MG, UNK
     Route: 042
     Dates: start: 20070323, end: 20070417
  8. ITRIZOLE [Concomitant]
     Indication: PROPHYLAXIS
     Dosage: 200.00 MG, UNK
     Route: 048
     Dates: start: 20070322, end: 20070412
  9. CIPROFLOXACIN HCL [Concomitant]
     Dosage: 600.00 MG, UNK
     Route: 048
     Dates: start: 20070322, end: 20070412
  10. ALFAROL [Concomitant]
     Indication: PROPHYLAXIS
     Dosage: 0.25 UG, UNK
     Route: 048
     Dates: start: 20070322, end: 20070412
  11. HARTMANN [Concomitant]
     Dosage: 2000.00 ML, UNK
     Route: 042
     Dates: start: 20070322, end: 20070327
  12. BLOPRESS [Concomitant]
     Dosage: 8.00 MG, UNK
     Route: 048
     Dates: start: 20070322, end: 20070412
  13. TAKEPRON [Concomitant]
     Indication: PROPHYLAXIS
     Dosage: 15.00 MG, UNK
     Route: 048
     Dates: start: 20070322, end: 20070412

REACTIONS (3)
  - PLATELET COUNT DECREASED [None]
  - WHITE BLOOD CELL COUNT DECREASED [None]
  - DEATH [None]
